FAERS Safety Report 7297274-9 (Version None)
Quarter: 2011Q1

REPORT INFORMATION
  Report Type: 
  Country: None (occurrence: None)
  Receive Date: 20110216
  Receipt Date: 20110208
  Transmission Date: 20110831
  Serious: Yes (Other)
  Sender: FDA-Public Use
  Company Number: PHHY2011US10401

PATIENT
  Sex: Male

DRUGS (5)
  1. MIDODRINE HYDROCHLORIDE [Concomitant]
  2. MYFORTIC [Suspect]
     Dosage: 360 MG, BID
     Route: 048
  3. TACROLIMUS [Concomitant]
  4. FLUDROCORTISONE [Concomitant]
  5. MULTI-VITAMINS [Concomitant]

REACTIONS (1)
  - CEREBROVASCULAR ACCIDENT [None]
